FAERS Safety Report 10974786 (Version 2)
Quarter: 2015Q3

REPORT INFORMATION
  Report Type: Report from Study
  Country: CZ (occurrence: CZ)
  Receive Date: 20150401
  Receipt Date: 20150810
  Transmission Date: 20151125
  Serious: Yes (Other)
  Sender: FDA-Public Use
  Company Number: PHHY2015CZ034799

PATIENT
  Sex: Female

DRUGS (2)
  1. ZYKADIA [Suspect]
     Active Substance: CERITINIB
     Indication: NON-SMALL CELL LUNG CANCER
     Dosage: UNK
     Route: 065
     Dates: start: 20150130, end: 20150227
  2. ZYKADIA [Suspect]
     Active Substance: CERITINIB
     Dosage: UNK
     Route: 065
     Dates: end: 20150316

REACTIONS (7)
  - Blood creatinine increased [Recovering/Resolving]
  - Alanine aminotransferase increased [Recovered/Resolved]
  - Gamma-glutamyltransferase increased [Recovering/Resolving]
  - Non-small cell lung cancer [Unknown]
  - Malignant neoplasm progression [Unknown]
  - Blood alkaline phosphatase increased [Recovering/Resolving]
  - Bone lesion [Unknown]

NARRATIVE: CASE EVENT DATE: 20150227
